FAERS Safety Report 13468483 (Version 1)
Quarter: 2017Q2

REPORT INFORMATION
  Report Type: Spontaneous
  Country: RU (occurrence: RU)
  Receive Date: 20170421
  Receipt Date: 20170421
  Transmission Date: 20170830
  Serious: Yes (Other)
  Sender: FDA-Public Use
  Company Number: RU-ASTRAZENECA-2017SE40683

PATIENT
  Age: 55 Year
  Sex: Female
  Weight: 77 kg

DRUGS (8)
  1. LORISTA [Concomitant]
     Active Substance: LOSARTAN POTASSIUM
  2. CONCOR [Concomitant]
     Active Substance: BISOPROLOL FUMARATE
  3. BRILINTA [Suspect]
     Active Substance: TICAGRELOR
     Indication: STENT PLACEMENT
     Dosage: 180 MG
     Route: 048
     Dates: start: 20170329
  4. ROSUVASTATIN. [Concomitant]
     Active Substance: ROSUVASTATIN
  5. WARFARIN [Concomitant]
     Active Substance: WARFARIN
  6. VEROSPIRON [Concomitant]
     Active Substance: SPIRONOLACTONE
  7. BRILINTA [Suspect]
     Active Substance: TICAGRELOR
     Indication: STENT PLACEMENT
     Route: 048
     Dates: end: 20170413
  8. PLAVIX [Concomitant]
     Active Substance: CLOPIDOGREL BISULFATE

REACTIONS (4)
  - Joint neoplasm [Not Recovered/Not Resolved]
  - Lip neoplasm [Not Recovered/Not Resolved]
  - Epistaxis [Not Recovered/Not Resolved]
  - Contusion [Not Recovered/Not Resolved]

NARRATIVE: CASE EVENT DATE: 20170329
